FAERS Safety Report 5231472-0 (Version None)
Quarter: 2007Q1

REPORT INFORMATION
  Report Type: 
  Country: None (occurrence: None)
  Receive Date: 20070202
  Receipt Date: 20070124
  Transmission Date: 20070707
  Serious: No
  Sender: FDA-Public Use
  Company Number: 20073441

PATIENT
  Sex: Male

DRUGS (1)
  1. LIORESAL [Suspect]
     Indication: MUSCLE SPASTICITY
     Dosage: UNK MCG, DAILY; INTRATHECAL
     Route: 039

REACTIONS (11)
  - AGGRESSION [None]
  - ANXIETY [None]
  - DROOLING [None]
  - FACIAL SPASM [None]
  - MASTICATION DISORDER [None]
  - MEMORY IMPAIRMENT [None]
  - MOOD ALTERED [None]
  - MOOD SWINGS [None]
  - PSYCHOTIC DISORDER [None]
  - SELF INJURIOUS BEHAVIOUR [None]
  - URINARY RETENTION [None]
